FAERS Safety Report 7285664-X (Version None)
Quarter: 2011Q1

REPORT INFORMATION
  Report Type: 
  Country: None (occurrence: None)
  Receive Date: 20110210
  Receipt Date: 20110207
  Transmission Date: 20110831
  Serious: Yes (Life-Threatening, Hospitalization)
  Sender: FDA-Public Use
  Company Number: B0546619A

PATIENT
  Sex: Male

DRUGS (7)
  1. PYOSTACINE [Concomitant]
     Dates: start: 20080918, end: 20080923
  2. ORBENINE [Suspect]
     Indication: DERMO-HYPODERMITIS
     Dosage: 1G THREE TIMES PER DAY
     Route: 048
     Dates: start: 20080926, end: 20080928
  3. DIALYSIS [Concomitant]
     Dates: start: 20080922
  4. FLAMMAZINE [Concomitant]
     Dates: start: 20080918, end: 20080923
  5. AUGMENTIN [Suspect]
     Indication: DERMO-HYPODERMITIS
     Dosage: 1G TWICE PER DAY
     Route: 048
     Dates: start: 20080916, end: 20080918
  6. CIFLOX [Suspect]
     Indication: DERMO-HYPODERMITIS
     Route: 065
     Dates: start: 20080918, end: 20080923
  7. DALACINE [Suspect]
     Indication: DERMO-HYPODERMITIS
     Route: 048
     Dates: start: 20080918, end: 20080923

REACTIONS (7)
  - TUBULOINTERSTITIAL NEPHRITIS [None]
  - RENAL FAILURE ACUTE [None]
  - TOXICITY TO VARIOUS AGENTS [None]
  - PRURITUS [None]
  - DRUG ERUPTION [None]
  - ERYTHEMA [None]
  - URTICARIA [None]
